FAERS Safety Report 8386391 (Version 2)
Quarter: 2013Q4

REPORT INFORMATION
  Report Type: Spontaneous
  Country: US (occurrence: US)
  Receive Date: 20120202
  Receipt Date: 20131218
  Transmission Date: 20140711
  Serious: Yes (Other)
  Sender: FDA-Public Use
  Company Number: US-AMGEN-USASP2012000783

PATIENT
  Age: 68 Year
  Sex: Female
  Weight: 58.05 kg

DRUGS (7)
  1. ENBREL [Suspect]
     Indication: RHEUMATOID ARTHRITIS
     Dosage: UNK UNK, QWK
     Route: 065
     Dates: start: 2000, end: 20120615
  2. METHOTREXATE [Concomitant]
     Dosage: 1 MG, WEEKLY
     Dates: start: 1990
  3. REMICADE [Concomitant]
     Dosage: UNK
  4. HUMIRA [Concomitant]
     Indication: RHEUMATOID ARTHRITIS
     Dosage: UNK
  5. PREDNISONE [Concomitant]
     Indication: RHEUMATOID ARTHRITIS
     Dosage: UNK
  6. SULINDAC [Concomitant]
     Indication: RHEUMATOID ARTHRITIS
     Dosage: UNK
  7. PLAQUENIL                          /00072602/ [Concomitant]
     Indication: RHEUMATOID ARTHRITIS
     Dosage: UNK

REACTIONS (8)
  - Squamous cell carcinoma [Unknown]
  - Nasal septal operation [Not Recovered/Not Resolved]
  - Turbinectomy [Not Recovered/Not Resolved]
  - Alopecia [Not Recovered/Not Resolved]
  - Rheumatoid arthritis [Not Recovered/Not Resolved]
  - Human papilloma virus test positive [Unknown]
  - Drug ineffective [Recovered/Resolved]
  - Nasopharyngitis [Not Recovered/Not Resolved]
